FAERS Safety Report 14435103 (Version 1)
Quarter: 2018Q1

REPORT INFORMATION
  Report Type: Spontaneous
  Country: US (occurrence: US)
  Receive Date: 20180124
  Receipt Date: 20180124
  Transmission Date: 20180509
  Serious: No
  Sender: FDA-Public Use
  Company Number: None

PATIENT

DRUGS (3)
  1. 0.5% BUPIVACAINE HEAVY [Suspect]
     Active Substance: BUPIVACAINE
     Indication: PAIN MANAGEMENT
     Route: 053
     Dates: start: 20171214
  2. 0.5% BUPIVACAINE HEAVY [Suspect]
     Active Substance: BUPIVACAINE
     Indication: SURGERY
     Route: 053
     Dates: start: 20171214
  3. 0.5% BUPIVACAINE HEAVY [Suspect]
     Active Substance: BUPIVACAINE
     Indication: PROCEDURAL PAIN
     Route: 053
     Dates: start: 20171214

REACTIONS (1)
  - Drug effect incomplete [None]

NARRATIVE: CASE EVENT DATE: 20171214
